FAERS Safety Report 5343869-9 (Version None)
Quarter: 2007Q2

REPORT INFORMATION
  Report Type: 
  Country: None (occurrence: None)
  Receive Date: 20070531
  Receipt Date: 20070531
  Transmission Date: 20071010
  Serious: No
  Sender: FDA-Public Use
  Company Number: None

PATIENT
  Age: 60 Year
  Sex: Male
  Weight: 78.9259 kg

DRUGS (10)
  1. ABILIFY [Suspect]
     Indication: BIPOLAR DISORDER
     Dosage: 15MG -1/2 TABLET- QAM PO
     Route: 048
     Dates: start: 20050901, end: 20070525
  2. BUPROPION HCL [Concomitant]
  3. HYDROXYZINE HYDROCHLORIDE [Concomitant]
  4. CLONAZEPAM [Concomitant]
  5. FELODIPINE ER [Concomitant]
  6. OXYCODONE HCL [Concomitant]
  7. INDOMETHACIN [Concomitant]
  8. VARDENAFIL [Concomitant]
  9. LISINOPRIL [Concomitant]
  10. CILOSTAZOL [Concomitant]

REACTIONS (3)
  - BALANCE DISORDER [None]
  - FALL [None]
  - TREMOR [None]
